FAERS Safety Report 25971442 (Version 1)
Quarter: 2025Q4

REPORT INFORMATION
  Report Type: Report from Study
  Country: EU (occurrence: EU)
  Receive Date: 20251028
  Receipt Date: 20251028
  Transmission Date: 20260117
  Serious: Yes (Hospitalization, Other)
  Sender: ABBVIE
  Company Number: EU-ABBVIE-6519869

PATIENT
  Age: 62 Year
  Sex: Male

DRUGS (2)
  1. FOSCARBIDOPA\FOSLEVODOPA [Suspect]
     Active Substance: FOSCARBIDOPA\FOSLEVODOPA
     Indication: Parkinson^s disease
     Dosage: HIGH 0.40 ?ML/H ?BASIC 0.36 ?ML/H ?LOW 0.30 ?ML/H ?ED 0.20 ML ?LOADING 0.9 ?ML
     Route: 058
     Dates: start: 20241211
  2. PRAMIPEXOLE [Concomitant]
     Active Substance: PRAMIPEXOLE
     Indication: Product used for unknown indication
     Dosage: 0,7 MG 2 X ? TB

REACTIONS (3)
  - Catheter site abscess [Not Recovered/Not Resolved]
  - Catheter site necrosis [Unknown]
  - Catheter site infection [Unknown]

NARRATIVE: CASE EVENT DATE: 20250101
